FAERS Safety Report 4373938-1 (Version None)
Quarter: 2004Q2

REPORT INFORMATION
  Report Type: 
  Country: None (occurrence: None)
  Receive Date: 20040601
  Receipt Date: 20040408
  Transmission Date: 20050107
  Serious: Yes (Hospitalization)
  Sender: FDA-Public Use
  Company Number: 138736USA

PATIENT
  Age: 17 Year
  Sex: Female
  Weight: 46 kg

DRUGS (2)
  1. IFOSFAMIDE [Suspect]
     Indication: PRIMITIVE NEUROECTODERMAL TUMOUR
     Dates: start: 20040326, end: 20040326
  2. ETOPOSIDE [Concomitant]

REACTIONS (5)
  - CLONIC CONVULSION [None]
  - DEPRESSED LEVEL OF CONSCIOUSNESS [None]
  - DYSKINESIA [None]
  - MENTAL STATUS CHANGES [None]
  - NEUROTOXICITY [None]
